FAERS Safety Report 13151980 (Version 2)
Quarter: 2017Q1

REPORT INFORMATION
  Report Type: Spontaneous
  Country: KR (occurrence: KR)
  Receive Date: 20170125
  Receipt Date: 20170315
  Transmission Date: 20170428
  Serious: No
  Sender: FDA-Public Use
  Company Number: KR-009507513-1701KOR010138

PATIENT
  Age: 45 Year
  Sex: Male
  Weight: 81 kg

DRUGS (16)
  1. VINCRISTINE SULFATE. [Concomitant]
     Active Substance: VINCRISTINE SULFATE
     Indication: PERIPHERAL T-CELL LYMPHOMA UNSPECIFIED
     Dosage: 2 MG, FREQUENCY: 1, CYCLE: 2
     Route: 042
     Dates: start: 20161014, end: 20161014
  2. ULCERLMIN [Concomitant]
     Active Substance: SUCRALFATE
     Indication: PROPHYLAXIS
     Dosage: 2 TABLETS, FREQUENCY: 3
     Route: 048
     Dates: start: 20161014, end: 20161018
  3. NEULASTA [Concomitant]
     Active Substance: PEGFILGRASTIM
     Indication: ANAEMIA PROPHYLAXIS
     Dosage: 6 MG, FREQUENCY: 1
     Route: 058
     Dates: start: 20161014, end: 20161014
  4. MUCOSTA [Concomitant]
     Active Substance: REBAMIPIDE
     Indication: PROPHYLAXIS
     Dosage: 1 TABLET, FREQUENCY 2
     Route: 048
     Dates: start: 20161005
  5. EMEND (FOSAPREPITANT DIMEGLUMINE) [Suspect]
     Active Substance: FOSAPREPITANT DIMEGLUMINE
     Indication: PROPHYLAXIS OF NAUSEA AND VOMITING
     Dosage: 150 MG, ONCE
     Route: 042
     Dates: start: 20161014, end: 20161014
  6. ALOXI [Concomitant]
     Active Substance: PALONOSETRON HYDROCHLORIDE
     Indication: PROPHYLAXIS OF NAUSEA AND VOMITING
     Dosage: 0.25MG, FREQUENCY: 1
     Route: 042
     Dates: start: 20161014, end: 20161014
  7. DOXORUBICIN HYDROCHLORIDE. [Concomitant]
     Active Substance: DOXORUBICIN HYDROCHLORIDE
     Indication: PERIPHERAL T-CELL LYMPHOMA UNSPECIFIED
     Dosage: 101MG FREQUENCY:1, CYCLE:2
     Route: 042
     Dates: start: 20161014, end: 20161014
  8. ENDOXAN [Concomitant]
     Active Substance: CYCLOPHOSPHAMIDE
     Indication: PERIPHERAL T-CELL LYMPHOMA UNSPECIFIED
     Dosage: 1515 MG, FREQUENCY: 1, CYCLE:2
     Route: 042
     Dates: start: 20161014, end: 20161014
  9. UROMITEXAN [Concomitant]
     Active Substance: MESNA
     Indication: PERIPHERAL T-CELL LYMPHOMA UNSPECIFIED
     Dosage: STRENGTH: 400MG/4ML, 1515MG, FREQUENCY: 1, CYCLE:2
     Route: 042
     Dates: start: 20161014, end: 20161014
  10. SEPTRIN [Concomitant]
     Active Substance: SULFAMETHOXAZOLE\TRIMETHOPRIM
     Indication: PROPHYLAXIS
     Dosage: 2 TABLETS, FREQUENCY: 2
     Route: 048
     Dates: start: 20161014, end: 20161017
  11. SPATAM [Concomitant]
     Indication: PROPHYLAXIS
     Dosage: 1 CAPSULE, FREQUENCY: 3
     Route: 048
     Dates: start: 20161014, end: 20161021
  12. ALLEGRA-D [Concomitant]
     Active Substance: FEXOFENADINE\PSEUDOEPHEDRINE
     Indication: ALLERGY PROPHYLAXIS
     Dosage: 1 TABLET, FREQUENCY: 2
     Route: 048
     Dates: start: 20161014, end: 20161021
  13. FOLIC ACID. [Concomitant]
     Active Substance: FOLIC ACID
     Indication: ANAEMIA PROPHYLAXIS
     Dosage: 1 TABLET, FREQUENCY: 1
     Route: 048
     Dates: start: 20161014, end: 20161015
  14. ZYLORIC [Concomitant]
     Active Substance: ALLOPURINOL
     Indication: PROPHYLAXIS
     Dosage: 1 TABLET, FREQUENCY:3
     Route: 048
     Dates: start: 20161014, end: 20161015
  15. SOLONDO [Concomitant]
     Active Substance: PREDNISOLONE
     Indication: PROPHYLAXIS OF NAUSEA AND VOMITING
     Dosage: 5 MG, FREQUENCY: 1
     Route: 048
     Dates: start: 20161005
  16. TASNA [Concomitant]
     Indication: PROPHYLAXIS
     Dosage: 2 TABLETS, FREQUENCY: 3
     Route: 048
     Dates: start: 20161014, end: 20161015

REACTIONS (1)
  - Back pain [Recovered/Resolved]

NARRATIVE: CASE EVENT DATE: 20161028
